FAERS Safety Report 8340542 (Version 2)
Quarter: 2015Q2

REPORT INFORMATION
  Report Type: Report from Study
  Country: US (occurrence: US)
  Receive Date: 20120117
  Receipt Date: 20150623
  Transmission Date: 20150821
  Serious: Yes (Death, Hospitalization)
  Sender: FDA-Public Use
  Company Number: US-ROCHE-1029110

PATIENT
  Sex: Female
  Weight: 73.55 kg

DRUGS (9)
  1. AVASTIN [Suspect]
     Active Substance: BEVACIZUMAB
     Route: 042
  2. AVASTIN [Suspect]
     Active Substance: BEVACIZUMAB
     Indication: PANCREATIC CARCINOMA
     Route: 042
     Dates: start: 20071205
  3. DECADRON [Concomitant]
     Active Substance: DEXAMETHASONE
     Route: 065
  4. ANZEMET [Concomitant]
     Active Substance: DOLASETRON MESYLATE
     Route: 065
  5. ARIMIDEX [Concomitant]
     Active Substance: ANASTROZOLE
  6. GEMZAR [Concomitant]
     Active Substance: GEMCITABINE HYDROCHLORIDE
     Route: 065
     Dates: start: 20071205
  7. ALOXI [Concomitant]
     Active Substance: PALONOSETRON HYDROCHLORIDE
     Route: 065
  8. TARCEVA [Suspect]
     Active Substance: ERLOTINIB HYDROCHLORIDE
     Indication: PANCREATIC CARCINOMA
     Route: 048
     Dates: start: 20080116
  9. PEGFILGRASTIM [Concomitant]
     Active Substance: PEGFILGRASTIM
     Route: 065

REACTIONS (9)
  - Off label use [Unknown]
  - Abdominal pain [Unknown]
  - Arthritis [Unknown]
  - Pleural effusion [Unknown]
  - Thecal sac compression [Unknown]
  - Herpes zoster [Unknown]
  - Pneumonia [Unknown]
  - Disease progression [Unknown]
  - Death [Fatal]
